FAERS Safety Report 9833396 (Version 1)
Quarter: 2014Q1

REPORT INFORMATION
  Report Type: Spontaneous
  Country: FR (occurrence: FR)
  Receive Date: 20140121
  Receipt Date: 20140121
  Transmission Date: 20141002
  Serious: Yes (Death, Other)
  Sender: FDA-Public Use
  Company Number: FR-AMGEN-FRASP2014003471

PATIENT
  Age: 79 Year
  Sex: Female
  Weight: 55 kg

DRUGS (1)
  1. NPLATE [Suspect]
     Indication: IMMUNE THROMBOCYTOPENIC PURPURA
     Dosage: 300 MUG, QWK
     Route: 058
     Dates: start: 201012

REACTIONS (5)
  - Death [Fatal]
  - Oesophageal adenocarcinoma [Unknown]
  - Sepsis [Unknown]
  - Leukocytosis [Recovered/Resolved]
  - Incorrect dose administered [Unknown]
